FAERS Safety Report 23967452 (Version 13)
Quarter: 2024Q4

REPORT INFORMATION
  Report Type: Report from Study
  Country: US (occurrence: US)
  Receive Date: 20240612
  Receipt Date: 20241231
  Transmission Date: 20250114
  Serious: Yes (Hospitalization, Other)
  Sender: TAKEDA
  Company Number: US-TAKEDA-2024TUS055315

PATIENT
  Age: 75 Year
  Sex: Female

DRUGS (5)
  1. VEDOLIZUMAB [Suspect]
     Active Substance: VEDOLIZUMAB
     Indication: Colitis ulcerative
     Dosage: 300 MILLIGRAM
  2. VEDOLIZUMAB [Suspect]
     Active Substance: VEDOLIZUMAB
     Indication: Colitis ulcerative
     Dosage: 108 MILLIGRAM, 1/WEEK
  3. VEDOLIZUMAB [Suspect]
     Active Substance: VEDOLIZUMAB
     Dosage: 108 MILLIGRAM, Q2WEEKS
     Dates: start: 20240919, end: 20241016
  4. PREDNISONE [Suspect]
     Active Substance: PREDNISONE
     Indication: Haemorrhage
     Dosage: UNK
  5. VITAMIN B12 [Concomitant]
     Active Substance: CYANOCOBALAMIN
     Dosage: UNK

REACTIONS (31)
  - Colitis ulcerative [Not Recovered/Not Resolved]
  - Haematochezia [Recovered/Resolved]
  - Illness [Recovered/Resolved]
  - Injection site pain [Unknown]
  - Injection site extravasation [Unknown]
  - Rectal discharge [Not Recovered/Not Resolved]
  - Aphthous ulcer [Not Recovered/Not Resolved]
  - Sciatica [Unknown]
  - Asthenia [Not Recovered/Not Resolved]
  - Abdominal pain upper [Not Recovered/Not Resolved]
  - Dry skin [Not Recovered/Not Resolved]
  - Mucous stools [Recovered/Resolved]
  - Inappropriate schedule of product administration [Unknown]
  - Product dose omission issue [Not Recovered/Not Resolved]
  - Defaecation urgency [Not Recovered/Not Resolved]
  - Frequent bowel movements [Not Recovered/Not Resolved]
  - Drug ineffective [Unknown]
  - Feeling jittery [Not Recovered/Not Resolved]
  - Anaemia [Unknown]
  - Sleep disorder [Not Recovered/Not Resolved]
  - Painful respiration [Not Recovered/Not Resolved]
  - Off label use [Unknown]
  - Urinary tract infection [Recovered/Resolved]
  - Decreased appetite [Unknown]
  - Constipation [Not Recovered/Not Resolved]
  - Haemorrhoids [Not Recovered/Not Resolved]
  - Arthralgia [Not Recovered/Not Resolved]
  - Rash [Recovered/Resolved]
  - Pruritus [Recovered/Resolved]
  - Nausea [Not Recovered/Not Resolved]
  - Fatigue [Not Recovered/Not Resolved]

NARRATIVE: CASE EVENT DATE: 20240424
